FAERS Safety Report 9844477 (Version 1)
Quarter: 2014Q1

REPORT INFORMATION
  Report Type: Spontaneous
  Country: CA (occurrence: CA)
  Receive Date: 20140127
  Receipt Date: 20140127
  Transmission Date: 20141002
  Serious: Yes (Other)
  Sender: FDA-Public Use
  Company Number: CA-AMGEN-CANSP2014004529

PATIENT
  Age: 82 Year
  Sex: Female
  Weight: 67 kg

DRUGS (4)
  1. PROLIA [Suspect]
     Indication: PRODUCT USED FOR UNKNOWN INDICATION
     Dosage: 60 MG, UNK
     Route: 058
  2. ASA [Concomitant]
  3. LANSOPRAZOLE [Concomitant]
  4. VITAMIN D                          /00107901/ [Concomitant]

REACTIONS (4)
  - Aortic arteriosclerosis [Not Recovered/Not Resolved]
  - Cardiac murmur [Not Recovered/Not Resolved]
  - Eyelid oedema [Not Recovered/Not Resolved]
  - Urticaria [Not Recovered/Not Resolved]
